FAERS Safety Report 12611318 (Version 1)
Quarter: 2016Q3

REPORT INFORMATION
  Report Type: Spontaneous
  Country: ZA (occurrence: ZA)
  Receive Date: 20160801
  Receipt Date: 20160801
  Transmission Date: 20161109
  Serious: Yes (Other)
  Sender: FDA-Public Use
  Company Number: ZA-009507513-1602ZAF012502

PATIENT
  Sex: Female

DRUGS (1)
  1. IMPLANON [Suspect]
     Active Substance: ETONOGESTREL
     Dosage: UNK; INSERTED DEEPER THAN THE NORMAL SUBDERMAL AND CLOSE TO THE BONE
     Route: 030
     Dates: start: 201408, end: 20160711

REACTIONS (5)
  - General anaesthesia [Unknown]
  - Complication of device removal [Recovered/Resolved]
  - Complication associated with device [Recovered/Resolved]
  - Incorrect route of drug administration [Unknown]
  - Device deployment issue [Recovered/Resolved]

NARRATIVE: CASE EVENT DATE: 201408
